FAERS Safety Report 22206222 (Version 1)
Quarter: 2023Q2

REPORT INFORMATION
  Report Type: Spontaneous
  Country: US (occurrence: None)
  Receive Date: 20230412
  Receipt Date: 20230412
  Transmission Date: 20230721
  Serious: Yes (Other)
  Sender: FDA-Public Use
  Company Number: None

PATIENT
  Age: 73 Year
  Sex: Female

DRUGS (14)
  1. AMBRISENTAN [Suspect]
     Active Substance: AMBRISENTAN
     Indication: Pulmonary arterial hypertension
     Dosage: FREQUENCY : DAILY;?
     Route: 048
     Dates: start: 20130506
  2. TADALAFIL [Concomitant]
     Active Substance: TADALAFIL
  3. ALLOPURINOL [Concomitant]
  4. MYCOPHENOLATE SODIUM [Concomitant]
  5. METOPROLOL [Concomitant]
  6. MIRTAZAPINE [Concomitant]
  7. FUROSEMIDE [Concomitant]
  8. TACROLIMUS [Concomitant]
  9. XOPENEX HFA [Concomitant]
     Active Substance: LEVALBUTEROL TARTRATE
  10. POTASSIUM CHLORIDE [Concomitant]
     Active Substance: POTASSIUM CHLORIDE
  11. WARFARIN [Concomitant]
  12. PANTOPRAZOLE [Concomitant]
  13. VITA D3 [Concomitant]
  14. oxygen supplemental [Concomitant]

REACTIONS (4)
  - Ear pain [None]
  - Pneumonia [None]
  - Erythema [None]
  - Middle ear effusion [None]

NARRATIVE: CASE EVENT DATE: 20230319
